FAERS Safety Report 18106934 (Version 2)
Quarter: 2020Q3

REPORT INFORMATION
  Report Type: Spontaneous
  Country: JP (occurrence: JP)
  Receive Date: 20200804
  Receipt Date: 20200812
  Transmission Date: 20201103
  Serious: Yes (Other)
  Sender: FDA-Public Use
  Company Number: NVSJ2020JP007420

PATIENT
  Sex: Female
  Weight: 63.5 kg

DRUGS (1)
  1. EVEROLIMUS. [Suspect]
     Active Substance: EVEROLIMUS
     Indication: BREAST CANCER RECURRENT
     Dosage: 5 MG/DAY, UNK
     Route: 048

REACTIONS (10)
  - Abdominal tenderness [Recovering/Resolving]
  - Colitis ulcerative [Unknown]
  - Decreased appetite [Unknown]
  - Gastrointestinal tract mucosal discolouration [Unknown]
  - Diarrhoea [Recovering/Resolving]
  - Pyrexia [Recovering/Resolving]
  - Anaemia [Unknown]
  - Oedema mucosal [Unknown]
  - Diarrhoea haemorrhagic [Recovering/Resolving]
  - Gastrointestinal wall thickening [Unknown]
